FAERS Safety Report 25183061 (Version 1)
Quarter: 2025Q2

REPORT INFORMATION
  Report Type: Spontaneous
  Country: FR (occurrence: FR)
  Receive Date: 20250410
  Receipt Date: 20250410
  Transmission Date: 20250717
  Serious: Yes (Other)
  Sender: BRISTOL MYERS SQUIBB
  Company Number: FR-BRISTOL-MYERS SQUIBB COMPANY-2025-041639

PATIENT
  Age: 75 Year
  Sex: Female
  Weight: 61 kg

DRUGS (4)
  1. ELIQUIS [Suspect]
     Active Substance: APIXABAN
     Indication: Superficial vein thrombosis
     Dosage: DOSE : 2.5MG;     FREQ : 2 TIMES A DAY, FOR 6 WEEKS.
     Route: 048
     Dates: start: 20250228
  2. LEVOTHYROXINE [Suspect]
     Active Substance: LEVOTHYROXINE
     Indication: Autoimmune thyroiditis
  3. ACETAMINOPHEN [Concomitant]
     Active Substance: ACETAMINOPHEN
     Indication: Pain
  4. ESTROGENS [Concomitant]
     Active Substance: ESTROGENS
     Indication: Menopausal symptoms

REACTIONS (5)
  - Back disorder [Unknown]
  - Body height decreased [Unknown]
  - Treatment noncompliance [Unknown]
  - Off label use [Unknown]
  - Hyperthyroidism [Unknown]
